FAERS Safety Report 23658316 (Version 1)
Quarter: 2024Q1

REPORT INFORMATION
  Report Type: Spontaneous
  Country: GR (occurrence: GR)
  Receive Date: 20240321
  Receipt Date: 20240321
  Transmission Date: 20240410
  Serious: Yes (Hospitalization)
  Sender: FDA-Public Use
  Company Number: GR-PFIZER INC-PV202300183198

PATIENT
  Age: 76 Year
  Sex: Male

DRUGS (1)
  1. METHOTREXATE SODIUM [Suspect]
     Active Substance: METHOTREXATE SODIUM
     Indication: Rheumatoid arthritis
     Dosage: UNK
     Route: 065

REACTIONS (8)
  - Haemorrhage intracranial [Unknown]
  - Fall [Unknown]
  - Haemothorax [Unknown]
  - Acute kidney injury [Unknown]
  - Pancytopenia [Unknown]
  - Haemophagocytic lymphohistiocytosis [Unknown]
  - Acute myeloid leukaemia [Unknown]
  - Pseudomonas infection [Unknown]
